FAERS Safety Report 20470657 (Version 1)
Quarter: 2022Q1

REPORT INFORMATION
  Report Type: Spontaneous
  Country: US (occurrence: None)
  Receive Date: 20220211
  Receipt Date: 20220211
  Transmission Date: 20220423
  Serious: Yes (Hospitalization)
  Sender: FDA-Public Use
  Company Number: None

PATIENT
  Age: 66 Year
  Sex: Male
  Weight: 88.0 kg

DRUGS (14)
  1. INLYTA [Suspect]
     Active Substance: AXITINIB
     Indication: Renal cell carcinoma
     Dosage: FREQUENCY : TWICE A DAY;?
     Route: 048
     Dates: start: 20210908
  2. KLOR-CON [Concomitant]
     Active Substance: POTASSIUM CHLORIDE
  3. METOPROLOL [Concomitant]
     Active Substance: METOPROLOL
  4. SIMETHICONE [Concomitant]
  5. MULTIVITAMIN [Concomitant]
  6. OMEPRAZOLE [Concomitant]
  7. ASPIRIN LOW DOSE [Concomitant]
  8. FISH OIL [Concomitant]
  9. FUROSEMIDE [Concomitant]
  10. HUMALOG [Concomitant]
  11. BASAGLAR [Concomitant]
  12. RANOLAZINE [Concomitant]
  13. SENNA ZOCOR [Concomitant]
  14. TRULICITY [Concomitant]

REACTIONS (1)
  - Internal haemorrhage [None]

NARRATIVE: CASE EVENT DATE: 20220211
